FAERS Safety Report 23201941 (Version 1)
Quarter: 2023Q4

REPORT INFORMATION
  Report Type: Spontaneous
  Country: US (occurrence: US)
  Receive Date: 20231120
  Receipt Date: 20231120
  Transmission Date: 20240110
  Serious: No
  Sender: FDA-Public Use
  Company Number: US-ABBVIE-5503680

PATIENT

DRUGS (1)
  1. DURYSTA [Suspect]
     Active Substance: BIMATOPROST
     Indication: Open angle glaucoma
     Dosage: TIME INTERVAL: AS NECESSARY
     Route: 047

REACTIONS (4)
  - Myopia [Recovered/Resolved]
  - Implant site discharge [Recovered/Resolved]
  - Corneal thinning [Recovered/Resolved]
  - Open angle glaucoma [Recovered/Resolved]
